FAERS Safety Report 22088092 (Version 3)
Quarter: 2023Q2

REPORT INFORMATION
  Report Type: Spontaneous
  Country: BR (occurrence: BR)
  Receive Date: 20230313
  Receipt Date: 20230620
  Transmission Date: 20230722
  Serious: Yes (Hospitalization)
  Sender: FDA-Public Use
  Company Number: BR-BEH-2023156190

PATIENT
  Age: 8 Year
  Sex: Male
  Weight: 32 kg

DRUGS (6)
  1. HIZENTRA [Suspect]
     Active Substance: HUMAN IMMUNOGLOBULIN G
     Indication: Primary immunodeficiency syndrome
     Dosage: 6 GRAM, QOW
     Route: 058
     Dates: start: 202212, end: 202212
  2. HIZENTRA [Suspect]
     Active Substance: HUMAN IMMUNOGLOBULIN G
     Indication: Hypogammaglobulinaemia
     Dosage: 6 GRAM, SINGLE
     Route: 058
     Dates: start: 20230211, end: 20230211
  3. HIZENTRA [Suspect]
     Active Substance: HUMAN IMMUNOGLOBULIN G
     Indication: Vaccination failure
     Dosage: 6 GRAM, SINGLE
     Route: 058
     Dates: start: 20230225, end: 20230225
  4. HIZENTRA [Suspect]
     Active Substance: HUMAN IMMUNOGLOBULIN G
     Dosage: 6 GRAM, EVERY 15 DAYS (15/15 DAYS)
     Route: 058
  5. CEFUROXIME [Concomitant]
     Active Substance: CEFUROXIME
     Indication: Ear infection
     Dosage: 750 MMG, TID, EVERY 8/8H
     Route: 042
     Dates: start: 20230227, end: 20230310
  6. AMOXICILLIN [Concomitant]
     Active Substance: AMOXICILLIN
     Indication: Prophylaxis
     Dosage: 500 MILLIGRAM, QD
     Route: 048
     Dates: start: 20230209, end: 20230226

REACTIONS (11)
  - Haemolytic anaemia [Recovered/Resolved]
  - Otorrhoea [Recovered/Resolved]
  - Ear pain [Recovered/Resolved]
  - Chromaturia [Recovered/Resolved]
  - Asthenia [Recovered/Resolved]
  - Fatigue [Recovered/Resolved]
  - Ocular icterus [Recovered/Resolved]
  - No adverse event [Unknown]
  - Therapy interrupted [Unknown]
  - Off label use [Unknown]
  - Pallor [Recovered/Resolved]

NARRATIVE: CASE EVENT DATE: 20230224
